FAERS Safety Report 4311958-3 (Version None)
Quarter: 2004Q1

REPORT INFORMATION
  Report Type: 
  Country: None (occurrence: None)
  Receive Date: 20040303
  Receipt Date: 20040219
  Transmission Date: 20041129
  Serious: Yes (Disabling)
  Sender: FDA-Public Use
  Company Number: 2003GB00871

PATIENT
  Age: 71 Year
  Sex: Female
  Weight: 73 kg

DRUGS (12)
  1. NOLVADEX [Suspect]
     Indication: BREAST CANCER
     Dosage: 20 MG QD PO
     Route: 048
     Dates: start: 19980703
  2. GTN SPRAY [Concomitant]
  3. GLICLAZIDE [Concomitant]
  4. ATARAX [Concomitant]
  5. DETRUSITOL [Concomitant]
  6. DIPROSALIC [Concomitant]
  7. CANESTEN-HC [Concomitant]
  8. ORTHO DIENOESTROL CREAM [Concomitant]
  9. NEOTIGASON [Concomitant]
  10. INSULIN [Concomitant]
  11. GLYBURIDE [Concomitant]
  12. EUMOVATE [Concomitant]

REACTIONS (6)
  - CEREBROVASCULAR ACCIDENT [None]
  - COGNITIVE DISORDER [None]
  - FLATULENCE [None]
  - HOT FLUSH [None]
  - PERIARTHRITIS [None]
  - WEIGHT INCREASED [None]
